FAERS Safety Report 11087499 (Version 11)
Quarter: 2016Q2

REPORT INFORMATION
  Report Type: Spontaneous
  Country: BR (occurrence: BR)
  Receive Date: 20150504
  Receipt Date: 20160425
  Transmission Date: 20160815
  Serious: Yes (Other)
  Sender: FDA-Public Use
  Company Number: BR-PFIZER INC-2015150402

PATIENT
  Age: 45 Year
  Sex: Female
  Weight: 86 kg

DRUGS (4)
  1. LOSARTAN. [Concomitant]
     Active Substance: LOSARTAN
     Indication: HYPERTENSION
     Dosage: 100 MG, 1X/DAY IN THE MORNING
  2. SUTENT [Suspect]
     Active Substance: SUNITINIB MALATE
     Dosage: UNK
  3. AMLODIPINE [Concomitant]
     Active Substance: AMLODIPINE BESYLATE
     Indication: HYPERTENSION
     Dosage: UNK
     Dates: end: 201603
  4. SUTENT [Suspect]
     Active Substance: SUNITINIB MALATE
     Indication: METASTATIC RENAL CELL CARCINOMA
     Dosage: 50 MG, CYCLE 2X1
     Route: 048
     Dates: start: 20150412, end: 20160321

REACTIONS (35)
  - Ocular hyperaemia [Unknown]
  - Skin exfoliation [Not Recovered/Not Resolved]
  - Oral pain [Unknown]
  - Skin discolouration [Not Recovered/Not Resolved]
  - Blood pressure increased [Not Recovered/Not Resolved]
  - Skin hypertrophy [Unknown]
  - Stomatitis [Not Recovered/Not Resolved]
  - Weight decreased [Not Recovered/Not Resolved]
  - Tooth disorder [Not Recovered/Not Resolved]
  - Limb discomfort [Not Recovered/Not Resolved]
  - Hair disorder [Not Recovered/Not Resolved]
  - Ear pain [Unknown]
  - Wound [Unknown]
  - Finger deformity [Not Recovered/Not Resolved]
  - Erysipelas [Unknown]
  - Hypophagia [Not Recovered/Not Resolved]
  - Vulvovaginal pain [Unknown]
  - Pain in extremity [Unknown]
  - Noninfective gingivitis [Unknown]
  - Decreased immune responsiveness [Unknown]
  - Insomnia [Unknown]
  - Dermatitis [Unknown]
  - Disease progression [Unknown]
  - Metastatic renal cell carcinoma [Unknown]
  - Back pain [Unknown]
  - Pain [Recovering/Resolving]
  - Gingival pain [Unknown]
  - Rash [Not Recovered/Not Resolved]
  - Wound [Not Recovered/Not Resolved]
  - Rash macular [Unknown]
  - Pruritus [Unknown]
  - Peripheral swelling [Not Recovered/Not Resolved]
  - Respiration abnormal [Not Recovered/Not Resolved]
  - Abdominal pain upper [Recovering/Resolving]
  - Renal disorder [Unknown]

NARRATIVE: CASE EVENT DATE: 2015
